FAERS Safety Report 24454646 (Version 2)
Quarter: 2024Q4

REPORT INFORMATION
  Report Type: Report from Study
  Country: US (occurrence: US)
  Receive Date: 20241017
  Receipt Date: 20241018
  Transmission Date: 20250115
  Serious: No
  Sender: ROCHE
  Company Number: US-ROCHE-3474382

PATIENT
  Age: 84 Year
  Sex: Male
  Weight: 83.5 kg

DRUGS (15)
  1. RITUXAN [Suspect]
     Active Substance: RITUXIMAB
     Indication: Product used for unknown indication
     Route: 065
  2. VENCLEXTA [Suspect]
     Active Substance: VENETOCLAX
     Indication: B-cell lymphoma
     Dosage: 4 TABLETS
     Route: 048
     Dates: start: 20231130
  3. ZANUBRUTINIB [Concomitant]
     Active Substance: ZANUBRUTINIB
  4. IMBRUVICA [Concomitant]
     Active Substance: IBRUTINIB
  5. BENDAMUSTINE [Concomitant]
     Active Substance: BENDAMUSTINE
  6. ZOFRAN [Concomitant]
     Active Substance: ONDANSETRON HYDROCHLORIDE
  7. COMPAZINE [Concomitant]
     Active Substance: PROCHLORPERAZINE MALEATE
  8. TYLENOL [Concomitant]
     Active Substance: ACETAMINOPHEN
  9. OSCAL D [Concomitant]
     Active Substance: CALCIUM CARBONATE\CHOLECALCIFEROL
  10. COREG [Concomitant]
     Active Substance: CARVEDILOL
  11. VITAMIN B12 [Concomitant]
     Active Substance: CYANOCOBALAMIN
  12. FLONASE [Concomitant]
     Active Substance: FLUTICASONE PROPIONATE
  13. ZESTRIL [Concomitant]
     Active Substance: LISINOPRIL
  14. CRESTOR [Concomitant]
     Active Substance: ROSUVASTATIN CALCIUM
  15. ZINC GLUCONATE [Concomitant]
     Active Substance: ZINC GLUCONATE

REACTIONS (4)
  - Peripheral swelling [Recovering/Resolving]
  - Dyspnoea [Unknown]
  - Brain fog [Recovered/Resolved]
  - Fatigue [Unknown]
